FAERS Safety Report 14410180 (Version 1)
Quarter: 2018Q1

REPORT INFORMATION
  Report Type: Spontaneous
  Country: US (occurrence: US)
  Receive Date: 20180119
  Receipt Date: 20180119
  Transmission Date: 20180509
  Serious: No
  Sender: FDA-Public Use
  Company Number: US-ASTRAZENECA-2018SE06814

PATIENT
  Sex: Male

DRUGS (3)
  1. ALVESCO [Suspect]
     Active Substance: CICLESONIDE
     Route: 055
     Dates: start: 20180103, end: 201801
  2. ALVESCO [Suspect]
     Active Substance: CICLESONIDE
     Route: 055
     Dates: start: 201705, end: 20180102
  3. ALVESCO [Suspect]
     Active Substance: CICLESONIDE
     Route: 055
     Dates: start: 201801

REACTIONS (2)
  - Product quality issue [Unknown]
  - Anxiety [Unknown]

NARRATIVE: CASE EVENT DATE: 20180103
